FAERS Safety Report 6723378-2 (Version None)
Quarter: 2010Q2

REPORT INFORMATION
  Report Type: 
  Country: None (occurrence: None)
  Receive Date: 20100513
  Receipt Date: 20091203
  Transmission Date: 20101027
  Serious: No
  Sender: FDA-Public Use
  Company Number: US-ABBOTT-09P-163-0613075-00

PATIENT
  Sex: Male
  Weight: 67.192 kg

DRUGS (7)
  1. GENGRAF [Suspect]
     Indication: APLASTIC ANAEMIA
     Dates: start: 20080201
  2. BACTRIM [Concomitant]
     Indication: APLASTIC ANAEMIA
  3. AMLODIPINE BESYLATE [Concomitant]
     Indication: HYPERTENSION
  4. SIMVASTATIN [Concomitant]
     Indication: BLOOD CHOLESTEROL INCREASED
  5. LORAZEPAM [Concomitant]
     Indication: ANXIETY
  6. TEMAZEPAM [Concomitant]
     Indication: SLEEP DISORDER THERAPY
  7. FLU [Concomitant]
     Indication: ANTIVIRAL PROPHYLAXIS

REACTIONS (3)
  - DIZZINESS [None]
  - GASTRIC DISORDER [None]
  - INFLUENZA LIKE ILLNESS [None]
